FAERS Safety Report 7366369-3 (Version None)
Quarter: 2011Q1

REPORT INFORMATION
  Report Type: 
  Country: None (occurrence: None)
  Receive Date: 20110304
  Receipt Date: 20110217
  Transmission Date: 20110831
  Serious: Yes (Other)
  Sender: FDA-Public Use
  Company Number: 2011SP007830

PATIENT
  Age: 41 Year
  Sex: Female

DRUGS (3)
  1. NOXAFIL [Suspect]
     Indication: LUNG INFECTION
     Dosage: 400 MG; BID; PO
     Route: 048
  2. NOXAFIL [Suspect]
     Indication: FUNGAL INFECTION
     Dosage: 400 MG; BID; PO
     Route: 048
  3. VORICONAZOLE [Concomitant]

REACTIONS (3)
  - LIVER FUNCTION TEST ABNORMAL [None]
  - CEREBELLAR HAEMORRHAGE [None]
  - ACUTE GRAFT VERSUS HOST DISEASE [None]
